FAERS Safety Report 11715247 (Version 1)
Quarter: 2015Q4

REPORT INFORMATION
  Report Type: Spontaneous
  Country: US (occurrence: US)
  Receive Date: 20151109
  Receipt Date: 20151109
  Transmission Date: 20160304
  Serious: No
  Sender: FDA-Public Use
  Company Number: ALCN2015US006867

PATIENT
  Age: 76 Year
  Sex: Female

DRUGS (1)
  1. NEO AND POLYMYXIN B SULFATES + DEX [Suspect]
     Active Substance: DEXAMETHASONE\NEOMYCIN SULFATE\POLYMYXIN B SULFATE
     Indication: CHALAZION
     Dosage: 1 GTT, QID
     Route: 047
     Dates: start: 20151022, end: 20151101

REACTIONS (2)
  - Ocular hyperaemia [Recovered/Resolved]
  - Eye pain [Recovered/Resolved]

NARRATIVE: CASE EVENT DATE: 20151022
